FAERS Safety Report 5977794-7 (Version None)
Quarter: 2008Q4

REPORT INFORMATION
  Report Type: 
  Country: None (occurrence: None)
  Receive Date: 20081202
  Receipt Date: 20081202
  Transmission Date: 20090506
  Serious: Yes (Hospitalization)
  Sender: FDA-Public Use
  Company Number: None

PATIENT
  Sex: Female
  Weight: 90.7194 kg

DRUGS (1)
  1. TOPAMAX [Suspect]
     Indication: HEADACHE
     Dosage: 25 MG TWICE DAILY PO
     Route: 048
     Dates: start: 20081118, end: 20081125

REACTIONS (5)
  - EYE DISORDER [None]
  - MYOPIA [None]
  - OCULAR HYPERAEMIA [None]
  - SCLERAL OEDEMA [None]
  - VISION BLURRED [None]
